FAERS Safety Report 7731313-3 (Version None)
Quarter: 2011Q3

REPORT INFORMATION
  Report Type: 
  Country: None (occurrence: None)
  Receive Date: 20110906
  Receipt Date: 20110823
  Transmission Date: 20111222
  Serious: Yes (Hospitalization, Other)
  Sender: FDA-Public Use
  Company Number: US-BAYER-2011-078018

PATIENT

DRUGS (1)
  1. ALEVE (CAPLET) [Suspect]
     Dosage: 2 DF, UNK
     Route: 048

REACTIONS (2)
  - HAEMORRHAGE [None]
  - PROTHROMBIN TIME ABNORMAL [None]
